FAERS Safety Report 4305632-7 (Version None)
Quarter: 2004Q1

REPORT INFORMATION
  Report Type: 
  Country: None (occurrence: None)
  Receive Date: 20040226
  Receipt Date: 20031218
  Transmission Date: 20041129
  Serious: No
  Sender: FDA-Public Use
  Company Number: US-BRISTOL-MYERS SQUIBB COMPANY-12460820

PATIENT
  Age: 43 Year
  Sex: Male
  Weight: 98 kg

DRUGS (4)
  1. ABILIFY [Suspect]
     Indication: SCHIZOPHRENIA
     Route: 048
     Dates: start: 20031208
  2. ABILIFY [Suspect]
     Indication: SCHIZOAFFECTIVE DISORDER
     Route: 048
     Dates: start: 20031208
  3. GLYBURIDE [Concomitant]
  4. ACTOS [Concomitant]

REACTIONS (4)
  - EYELID DISORDER [None]
  - INSOMNIA [None]
  - PHOTOPHOBIA [None]
  - STOMACH DISCOMFORT [None]
